FAERS Safety Report 7307897-6 (Version None)
Quarter: 2011Q1

REPORT INFORMATION
  Report Type: 
  Country: None (occurrence: None)
  Receive Date: 20110209
  Receipt Date: 20110124
  Transmission Date: 20110831
  Serious: Yes (Death)
  Sender: FDA-Public Use
  Company Number: 2011S1000057

PATIENT
  Age: 75 Year
  Sex: Female

DRUGS (9)
  1. AMITRIPTYLINE [Suspect]
     Dosage: PO
     Route: 048
     Dates: end: 20090101
  2. ORAMORPH SR [Suspect]
     Dosage: PO
     Route: 048
     Dates: end: 20090101
  3. DIPHENHYDRAMINE [Suspect]
     Dosage: PO
     Route: 048
     Dates: end: 20090101
  4. ALPRAZOLAM [Suspect]
     Dosage: PO
     Route: 048
     Dates: end: 20090101
  5. SSRI [Suspect]
     Dosage: PO
     Route: 048
     Dates: end: 20090101
  6. ROXICODONE [Suspect]
     Dosage: PO
     Route: 048
     Dates: end: 20090101
  7. ACETAMINOPHEN/OXYCODONE [Suspect]
     Dosage: PO
     Route: 048
     Dates: end: 20090101
  8. DRUG, UNKNOWN [Suspect]
     Dosage: PO
     Route: 048
     Dates: end: 20090101
  9. OPIOID [Suspect]
     Dosage: PO
     Route: 048
     Dates: end: 20090101

REACTIONS (1)
  - COMPLETED SUICIDE [None]
